FAERS Safety Report 25060981 (Version 1)
Quarter: 2025Q1

REPORT INFORMATION
  Report Type: Spontaneous
  Country: US (occurrence: US)
  Receive Date: 20250310
  Receipt Date: 20250310
  Transmission Date: 20250408
  Serious: No
  Sender: MERCK SHARP & DOHME LLC
  Company Number: US-009507513-2262088

PATIENT
  Age: 67 Year
  Sex: Female

DRUGS (2)
  1. CUBICIN [Suspect]
     Active Substance: DAPTOMYCIN
     Indication: Intervertebral discitis
     Route: 042
  2. ERTAPENEM [Concomitant]
     Active Substance: ERTAPENEM
     Indication: Intervertebral discitis

REACTIONS (1)
  - Product use in unapproved indication [Unknown]
